FAERS Safety Report 6814911-0 (Version None)
Quarter: 2010Q3

REPORT INFORMATION
  Report Type: 
  Country: None (occurrence: None)
  Receive Date: 20100702
  Receipt Date: 20100624
  Transmission Date: 20110219
  Serious: Yes (Hospitalization, Other)
  Sender: FDA-Public Use
  Company Number: JP-MILLENNIUM PHARMACEUTICALS, INC.-2010-03115

PATIENT

DRUGS (34)
  1. VELCADE [Suspect]
     Indication: MULTIPLE MYELOMA
     Dosage: 1.85 MG, CYCLIC
     Route: 042
     Dates: start: 20090907, end: 20091008
  2. VELCADE [Suspect]
     Dosage: 1.81 MG, CYCLIC
     Route: 042
     Dates: start: 20091019, end: 20091120
  3. VELCADE [Suspect]
     Dosage: 1.79 MG, CYCLIC
     Route: 042
     Dates: start: 20091214, end: 20091224
  4. VELCADE [Suspect]
     Dosage: 1.35 MG, CYCLIC
     Route: 042
     Dates: start: 20100118, end: 20100329
  5. VELCADE [Suspect]
     Dosage: 1.33 MG, CYCLIC
     Route: 042
     Dates: start: 20100419, end: 20100517
  6. VELCADE [Suspect]
     Dosage: 1.30 MG, CYCLIC
     Route: 042
     Dates: start: 20100531, end: 20100607
  7. MELPHALAN HYDROCHLORIDE [Suspect]
     Indication: MULTIPLE MYELOMA
     Dosage: 12 MG, UNK
     Route: 048
     Dates: start: 20090907, end: 20091218
  8. MELPHALAN HYDROCHLORIDE [Suspect]
     Dosage: 8 UNK, UNK
     Route: 048
     Dates: start: 20100118, end: 20100601
  9. PREDNISONE [Suspect]
     Indication: MULTIPLE MYELOMA
     Dosage: 85 MG, UNK
     Route: 048
     Dates: start: 20090907, end: 20090910
  10. PREDNISONE [Suspect]
     Dosage: 80 MG, UNK
     Route: 048
     Dates: start: 20091019, end: 20100304
  11. PREDNISONE [Suspect]
     Dosage: 75 MG, UNK
     Route: 048
     Dates: start: 20100419, end: 20100601
  12. LUDIOMIL                           /00331902/ [Suspect]
     Indication: DEPRESSION
     Dosage: 20 MG, UNK
     Route: 048
     Dates: end: 20100614
  13. LENDORMIN [Suspect]
     Indication: DEPRESSION
     Dosage: 0.25 MG, UNK
     Route: 048
     Dates: start: 20090812, end: 20100613
  14. LENDORMIN [Suspect]
     Indication: INSOMNIA
  15. LORAZEPAM [Suspect]
     Indication: DEPRESSION
     Dosage: 1 MG, UNK
     Route: 048
     Dates: start: 20100108, end: 20100614
  16. TETRAMIDE [Suspect]
     Indication: DEPRESSION
     Dosage: 10 MG, UNK
     Route: 048
     Dates: start: 20100312
  17. MYSLEE [Suspect]
     Indication: DEPRESSION
     Dosage: 5 MG, UNK
     Route: 048
     Dates: start: 20100303
  18. BASEN [Concomitant]
     Indication: HYPERTENSION
     Dosage: 0.6 MG, UNK
     Route: 048
  19. ADALAT [Concomitant]
     Indication: HYPERTENSION
     Dosage: 20 MG, UNK
     Route: 048
  20. COTRIM [Concomitant]
     Indication: PROPHYLAXIS
     Dosage: 480 MG, UNK
     Route: 048
     Dates: start: 20090904
  21. EXCELASE [Concomitant]
     Indication: CONSTIPATION
     Dosage: 3 DF, UNK
     Route: 048
  22. ARTIST [Concomitant]
     Indication: HYPERTENSION
     Dosage: 10 MG, UNK
     Route: 048
  23. ISODINE [Concomitant]
     Indication: PROPHYLAXIS
     Dosage: UNK
     Route: 049
     Dates: start: 20090914
  24. AZUNOL                             /00317302/ [Concomitant]
     Indication: PROPHYLAXIS
     Dosage: UNK
     Route: 049
     Dates: start: 20090918
  25. MAGMITT [Concomitant]
     Indication: CONSTIPATION
     Dosage: 660 MG, UNK
     Route: 048
     Dates: start: 20091019
  26. PARIET [Concomitant]
     Indication: PEPTIC ULCER
     Dosage: 10 MG, UNK
     Dates: start: 20091006
  27. MUCOSTA [Concomitant]
     Dosage: 300 MG, UNK
     Route: 048
     Dates: start: 20091006
  28. VALTREX [Concomitant]
     Indication: HERPES ZOSTER
     Dosage: 500 MG, UNK
     Route: 048
     Dates: start: 20091011
  29. PANTOSIN [Concomitant]
     Indication: CONSTIPATION
     Dosage: 2 G, UNK
     Route: 048
     Dates: start: 20091110
  30. PURSENNID                          /00142207/ [Concomitant]
     Indication: CONSTIPATION
     Dosage: 24 MG, UNK
  31. LAXOBERON [Concomitant]
     Indication: CONSTIPATION
     Dosage: UNK
     Route: 048
  32. METHYCOBAL                         /00324901/ [Concomitant]
     Indication: NEUROPATHY PERIPHERAL
     Dosage: 1500 UG, UNK
     Route: 048
     Dates: start: 20100309
  33. CELECOXIB [Concomitant]
     Indication: COMPRESSION FRACTURE
     Dosage: 200 MG, UNK
     Dates: start: 20100517
  34. ENSURE                             /00472201/ [Concomitant]
     Indication: DECREASED APPETITE
     Dosage: UNK
     Route: 048
     Dates: start: 20100517

REACTIONS (2)
  - DEPRESSION [None]
  - SUICIDE ATTEMPT [None]
